FAERS Safety Report 10209891 (Version 1)
Quarter: 2014Q2

REPORT INFORMATION
  Report Type: Report from Study
  Country: BE (occurrence: BE)
  Receive Date: 20140602
  Receipt Date: 20140602
  Transmission Date: 20141212
  Serious: Yes (Other)
  Sender: FDA-Public Use
  Company Number: BE-BAYER-2014-075809

PATIENT
  Age: 56 Year
  Sex: Female

DRUGS (2)
  1. BETAFERON [Suspect]
     Indication: MULTIPLE SCLEROSIS
     Dosage: UNK
     Dates: start: 20020101, end: 20140420
  2. LYSANXIA [Concomitant]

REACTIONS (5)
  - Thrombotic thrombocytopenic purpura [None]
  - Obstructive uropathy [None]
  - Infarction [None]
  - Infarction [None]
  - Hypertension [None]
